FAERS Safety Report 10686146 (Version 1)
Quarter: 2014Q4

REPORT INFORMATION
  Report Type: Spontaneous
  Country: US (occurrence: US)
  Receive Date: 20141231
  Receipt Date: 20141231
  Transmission Date: 20150529
  Serious: No
  Sender: FDA-Public Use
  Company Number: US-BAYER-2014-189126

PATIENT
  Age: 70 Year
  Sex: Male
  Weight: 95.24 kg

DRUGS (3)
  1. ALEVE [Suspect]
     Active Substance: NAPROXEN SODIUM
     Indication: ANALGESIC THERAPY
     Dosage: 2 DF, BID
     Route: 048
     Dates: start: 201411, end: 201411
  2. BAYER ADVANCED ASPIRIN EXTRA STRENGTH [Suspect]
     Active Substance: ASPIRIN
     Dosage: 2 DF, QD
     Route: 048
  3. FISH OIL [Concomitant]
     Active Substance: FISH OIL

REACTIONS (7)
  - Therapeutic response unexpected [None]
  - Incorrect drug administration duration [None]
  - Joint swelling [Recovered/Resolved]
  - Fluid retention [Recovered/Resolved]
  - Peripheral swelling [Recovered/Resolved]
  - Swelling face [Recovered/Resolved]
  - Extra dose administered [None]

NARRATIVE: CASE EVENT DATE: 201411
